FAERS Safety Report 10728453 (Version 1)
Quarter: 2015Q1

REPORT INFORMATION
  Report Type: Spontaneous
  Country: PT (occurrence: PT)
  Receive Date: 20150122
  Receipt Date: 20150122
  Transmission Date: 20150721
  Serious: Yes (Hospitalization)
  Sender: FDA-Public Use
  Company Number: PHHY2015PT007060

PATIENT
  Age: 56 Year
  Sex: Female

DRUGS (4)
  1. CARVEDILOL. [Concomitant]
     Active Substance: CARVEDILOL
     Indication: PRODUCT USED FOR UNKNOWN INDICATION
     Dosage: 12.5 MG, QD
     Route: 065
  2. METFORMIN [Suspect]
     Active Substance: METFORMIN HYDROCHLORIDE
     Indication: TYPE 2 DIABETES MELLITUS
     Dosage: 3 G, QD
     Route: 065
  3. INDAPAMIDE. [Concomitant]
     Active Substance: INDAPAMIDE
     Indication: PRODUCT USED FOR UNKNOWN INDICATION
     Dosage: 1.5 MG, QD
     Route: 065
  4. ACEMETACIN [Concomitant]
     Active Substance: ACEMETACIN
     Indication: PRODUCT USED FOR UNKNOWN INDICATION
     Dosage: 90 MG, IN SOS
     Route: 065

REACTIONS (13)
  - Acute kidney injury [Recovering/Resolving]
  - Lactic acidosis [Unknown]
  - Vomiting [Unknown]
  - Oliguria [Recovered/Resolved]
  - Disorientation [Unknown]
  - Abnormal behaviour [Unknown]
  - Fall [Unknown]
  - Proteinuria [Recovered/Resolved]
  - Hyperkalaemia [Unknown]
  - Hypoglycaemia [Unknown]
  - Hypothermia [Unknown]
  - Nausea [Unknown]
  - Psychomotor retardation [Unknown]
